FAERS Safety Report 16907020 (Version 1)
Quarter: 2019Q4

REPORT INFORMATION
  Report Type: Report from Study
  Country: None (occurrence: DE)
  Receive Date: 20191011
  Receipt Date: 20191011
  Transmission Date: 20200122
  Serious: Yes (Hospitalization)
  Sender: FDA-Public Use
  Company Number: DE-ABBVIE-19K-062-2956704-00

PATIENT
  Age: 72 Year
  Sex: Female

DRUGS (3)
  1. DUODOPA [Suspect]
     Active Substance: CARBIDOPA\LEVODOPA
     Indication: PARKINSON^S DISEASE
     Dosage: MD: 3ML, CRD: 3.4ML/H, CRN 2.2 ML/H; ED: 1.5ML
     Route: 050
     Dates: start: 20171004
  2. CANDESARTAN. [Concomitant]
     Active Substance: CANDESARTAN
     Indication: PRODUCT USED FOR UNKNOWN INDICATION
  3. CARMEN [Concomitant]
     Indication: PRODUCT USED FOR UNKNOWN INDICATION

REACTIONS (3)
  - Post procedural haemorrhage [Recovered/Resolved]
  - Endodontic procedure [Recovered/Resolved]
  - Akinesia [Recovering/Resolving]

NARRATIVE: CASE EVENT DATE: 201909
